FAERS Safety Report 24992581 (Version 1)
Quarter: 2025Q1

REPORT INFORMATION
  Report Type: Report from Study
  Country: CA (occurrence: CA)
  Receive Date: 20250221
  Receipt Date: 20250221
  Transmission Date: 20250409
  Serious: Yes (Hospitalization)
  Sender: ABBVIE
  Company Number: CA-ABBVIE-6136311

PATIENT
  Age: 60 Year
  Sex: Male

DRUGS (1)
  1. HUMIRA [Suspect]
     Active Substance: ADALIMUMAB
     Indication: Colitis ulcerative
     Route: 058

REACTIONS (13)
  - Tachycardia [Unknown]
  - Blood bilirubin increased [Recovering/Resolving]
  - Gallbladder polyp [Unknown]
  - Hepatic steatosis [Unknown]
  - Biliary tract disorder [Unknown]
  - Epstein-Barr virus infection [Unknown]
  - Alanine aminotransferase increased [Recovering/Resolving]
  - Faecal calprotectin increased [Unknown]
  - Dyspnoea [Unknown]
  - Constipation [Unknown]
  - Abdominal pain upper [Unknown]
  - Haematochezia [Unknown]
  - Musculoskeletal discomfort [Unknown]

NARRATIVE: CASE EVENT DATE: 20240101
